FAERS Safety Report 4886582-4 (Version None)
Quarter: 2006Q1

REPORT INFORMATION
  Report Type: 
  Country: None (occurrence: None)
  Receive Date: 20060118
  Receipt Date: 20051229
  Transmission Date: 20060701
  Serious: No
  Sender: FDA-Public Use
  Company Number: US200512000566

PATIENT
  Age: 42 Year
  Sex: Female
  Weight: 68 kg

DRUGS (3)
  1. CYMBALTA [Suspect]
     Indication: DEPRESSION
     Dosage: 30 MG, DAILY (1/D); 60 MG, DAILY (1/D)
     Dates: start: 20050501, end: 20050101
  2. CYMBALTA [Suspect]
     Indication: DEPRESSION
     Dosage: 30 MG, DAILY (1/D); 60 MG, DAILY (1/D)
     Dates: start: 20050101, end: 20051122
  3. IBUPROFEN [Concomitant]

REACTIONS (10)
  - ASTHENIA [None]
  - DISORIENTATION [None]
  - DRUG WITHDRAWAL SYNDROME [None]
  - FEELING ABNORMAL [None]
  - HEART RATE INCREASED [None]
  - HYPERTENSION [None]
  - HYPOMANIA [None]
  - LIBIDO DECREASED [None]
  - NIGHTMARE [None]
  - PALPITATIONS [None]
